FAERS Safety Report 5913459-5 (Version None)
Quarter: 2008Q4

REPORT INFORMATION
  Report Type: 
  Country: None (occurrence: None)
  Receive Date: 20081008
  Receipt Date: 20081008
  Transmission Date: 20090506
  Serious: No
  Sender: FDA-Public Use
  Company Number: None

PATIENT
  Sex: Female
  Weight: 70 kg

DRUGS (1)
  1. ZOMETA [Suspect]
     Dosage: 4 MG
     Dates: end: 20080305

REACTIONS (8)
  - BONE NEOPLASM MALIGNANT [None]
  - HYPOAESTHESIA [None]
  - INSOMNIA [None]
  - LOOSE TOOTH [None]
  - METASTASES TO BONE [None]
  - NEURALGIA [None]
  - OSTEONECROSIS [None]
  - TOOTHACHE [None]
